FAERS Safety Report 4664023-X (Version None)
Quarter: 2005Q2

REPORT INFORMATION
  Report Type: 
  Country: None (occurrence: None)
  Receive Date: 20050516
  Receipt Date: 20050516
  Transmission Date: 20051028
  Serious: Yes (Life-Threatening, Hospitalization)
  Sender: FDA-Public Use
  Company Number: None

PATIENT
  Age: 84 Year
  Sex: Male

DRUGS (11)
  1. XIFAXAN [Suspect]
     Indication: HEPATIC ENCEPHALOPATHY
     Dosage: ORAL; 200.0 MILLIGRAM
     Route: 048
     Dates: start: 20050322, end: 20050331
  2. XIFAXAN [Suspect]
     Indication: PROPHYLAXIS
     Dosage: ORAL; 200.0 MILLIGRAM
     Route: 048
     Dates: start: 20050322, end: 20050331
  3. ALTACE [Suspect]
     Indication: HYPERTENSION
     Dosage: ORAL; 2.5 MILLIGRAM
     Route: 048
     Dates: start: 20041201, end: 20050331
  4. SALIX [Suspect]
  5. PROPRANOLOL [Concomitant]
  6. FUROSEMIDE [Concomitant]
  7. GLIPIZIDE [Concomitant]
  8. MONTELUKAST [Concomitant]
  9. ASCORBIC ACID [Concomitant]
  10. ADVAIR DISKUS 100/50 [Concomitant]
  11. LANSOPRAZOLE [Concomitant]

REACTIONS (6)
  - ANAPHYLACTIC REACTION [None]
  - ANGIONEUROTIC OEDEMA [None]
  - HYPOGLYCAEMIA [None]
  - MACROGLOSSIA [None]
  - PARAESTHESIA ORAL [None]
  - WHEEZING [None]
